FAERS Safety Report 6174668-6 (Version None)
Quarter: 2009Q2

REPORT INFORMATION
  Report Type: 
  Country: None (occurrence: None)
  Receive Date: 20090430
  Receipt Date: 20090415
  Transmission Date: 20091009
  Serious: Yes (Death)
  Sender: FDA-Public Use
  Company Number: US-AMGEN-US344081

PATIENT
  Sex: Male
  Weight: 106.7 kg

DRUGS (11)
  1. PROCRIT [Suspect]
     Indication: ANAEMIA
     Route: 058
     Dates: start: 20090224, end: 20090415
  2. PEG-INTRON [Suspect]
     Route: 058
     Dates: start: 20080910, end: 20090415
  3. REBETOL [Suspect]
     Route: 048
     Dates: start: 20080910, end: 20090415
  4. HYDRALAZINE HCL [Concomitant]
     Route: 048
     Dates: start: 20080507, end: 20090415
  5. LOPERAMIDE HCL [Concomitant]
     Dates: start: 20090127, end: 20090415
  6. PROPRANOLOL [Concomitant]
     Route: 048
     Dates: start: 20090218
  7. TRAZODONE HCL [Concomitant]
     Route: 048
     Dates: start: 20090217
  8. ZINC SULFATE [Concomitant]
     Route: 048
     Dates: start: 20080516
  9. CIPROFLOXACIN [Concomitant]
     Route: 048
     Dates: start: 20080910, end: 20090415
  10. VITAMIN B-12 [Concomitant]
     Dates: start: 20080507, end: 20090415
  11. ESOMEPRAZOLE [Concomitant]
     Route: 048
     Dates: start: 20080224, end: 20090415

REACTIONS (1)
  - DEATH [None]
